FAERS Safety Report 24902128 (Version 1)
Quarter: 2025Q1

REPORT INFORMATION
  Report Type: Spontaneous
  Country: AU (occurrence: AU)
  Receive Date: 20250129
  Receipt Date: 20250129
  Transmission Date: 20250409
  Serious: Yes (Hospitalization, Other)
  Sender: NOVITIUM PHARMA
  Company Number: AU-NOVITIUMPHARMA-2025AUNVP00203

PATIENT
  Age: 18 Year
  Sex: Male

DRUGS (20)
  1. DEXAMETHASONE [Suspect]
     Active Substance: DEXAMETHASONE
     Indication: B-cell type acute leukaemia
  2. FLUDARABINE [Concomitant]
     Active Substance: FLUDARABINE PHOSPHATE
  3. CYTARABINE [Concomitant]
     Active Substance: CYTARABINE
  4. CYTARABINE [Concomitant]
     Active Substance: CYTARABINE
  5. FILGRASTIM [Concomitant]
     Active Substance: FILGRASTIM
  6. INOTUZUMAB OZOGAMICIN [Concomitant]
     Active Substance: INOTUZUMAB OZOGAMICIN
  7. VINCRISTINE [Concomitant]
     Active Substance: VINCRISTINE
  8. DOXORUBICIN [Concomitant]
     Active Substance: DOXORUBICIN
  9. METHOTREXATE [Concomitant]
     Active Substance: METHOTREXATE
     Route: 037
  10. CYCLOPHOSPHAMIDE [Concomitant]
     Active Substance: CYCLOPHOSPHAMIDE
  11. TISAGENLECLEUCEL [Concomitant]
     Active Substance: TISAGENLECLEUCEL
  12. TOCILIZUMAB [Concomitant]
     Active Substance: TOCILIZUMAB
     Indication: Cytokine release syndrome
  13. CEFEPIME [Concomitant]
     Active Substance: CEFEPIME HYDROCHLORIDE
     Indication: Product used for unknown indication
  14. VANCOMYCIN [Concomitant]
     Active Substance: VANCOMYCIN
  15. VANCOMYCIN [Concomitant]
     Active Substance: VANCOMYCIN
  16. VORICONAZOLE [Concomitant]
     Active Substance: VORICONAZOLE
     Route: 042
  17. CASPOFUNGIN [Concomitant]
     Active Substance: CASPOFUNGIN
     Route: 042
  18. MEROPENEM [Concomitant]
     Active Substance: MEROPENEM
  19. MEROPENEM [Concomitant]
     Active Substance: MEROPENEM
  20. ACYCLOVIR [Concomitant]
     Active Substance: ACYCLOVIR

REACTIONS (2)
  - Partial seizures [Unknown]
  - Drug ineffective [Unknown]
